FAERS Safety Report 17080137 (Version 1)
Quarter: 2019Q4

REPORT INFORMATION
  Report Type: Spontaneous
  Country: US (occurrence: US)
  Receive Date: 20191029
  Receipt Date: 20191029
  Transmission Date: 20200122
  Serious: Yes (Other)
  Sender: FDA-Public Use
  Company Number: None

PATIENT
  Age: 64 Year
  Sex: Female

DRUGS (1)
  1. MAVYRET [Suspect]
     Active Substance: GLECAPREVIR\PIBRENTASVIR
     Dosage: ?          OTHER DOSE:100/40MG;?
     Route: 048

REACTIONS (7)
  - Vomiting [None]
  - Tremor [None]
  - Amnesia [None]
  - Nausea [None]
  - Syncope [None]
  - Fatigue [None]
  - Dysarthria [None]
